FAERS Safety Report 8615479-9 (Version None)
Quarter: 2012Q3

REPORT INFORMATION
  Report Type: 
  Country: None (occurrence: None)
  Receive Date: 20120823
  Receipt Date: 20120814
  Transmission Date: 20120928
  Serious: Yes (Hospitalization, Other)
  Sender: FDA-Public Use
  Company Number: BR-JNJFOC-20120801677

PATIENT
  Sex: Male

DRUGS (5)
  1. NON THERAPEUTIC PRODUCT [Suspect]
     Indication: DRUG ABUSE
     Route: 065
  2. INVEGA SUSTENNA [Suspect]
     Indication: SCHIZOPHRENIA
     Route: 030
     Dates: start: 20120726
  3. ALCOHOL [Suspect]
     Indication: ALCOHOL ABUSE
     Route: 048
  4. UNKNOWN MEDICATION [Suspect]
     Indication: PNEUMONIA
     Route: 065
  5. COCAINE [Suspect]
     Indication: DRUG ABUSE
     Route: 065

REACTIONS (5)
  - EYE MOVEMENT DISORDER [None]
  - PARAESTHESIA [None]
  - PNEUMONIA [None]
  - ABNORMAL BEHAVIOUR [None]
  - ASTHENIA [None]
